FAERS Safety Report 7297102-1 (Version None)
Quarter: 2011Q1

REPORT INFORMATION
  Report Type: 
  Country: None (occurrence: None)
  Receive Date: 20110216
  Receipt Date: 20110210
  Transmission Date: 20110831
  Serious: Yes (Other)
  Sender: FDA-Public Use
  Company Number: US-PFIZER INC-2010150672

PATIENT
  Sex: Female

DRUGS (7)
  1. LYRICA [Suspect]
     Indication: RADICULOPATHY
     Dosage: 150 MG, 2X/DAY
     Route: 048
     Dates: start: 20091014, end: 20101015
  2. FLUOXETINE [Concomitant]
     Dosage: 20 MG, 1X/DAY
     Route: 048
  3. CYMBALTA [Concomitant]
     Dosage: UNK
  4. CLONAZEPAM [Concomitant]
     Dosage: 0.5 MG, 2X/DAY
     Route: 048
  5. LEVOTHYROXINE [Concomitant]
     Dosage: 0.175 UG, 1X/DAY
     Route: 048
  6. PREMARIN [Concomitant]
     Dosage: 30 MG, 1X/DAY
  7. AMBIEN [Concomitant]
     Dosage: 12.5 MG, 2X/DAY
     Route: 048

REACTIONS (1)
  - VISION BLURRED [None]
